FAERS Safety Report 9767363 (Version 1)
Quarter: 2013Q4

REPORT INFORMATION
  Report Type: Spontaneous
  Country: IT (occurrence: None)
  Receive Date: 20131213
  Receipt Date: 20131213
  Transmission Date: 20140711
  Serious: Yes (Death, Hospitalization)
  Sender: FDA-Public Use
  Company Number: FK201305310

PATIENT
  Age: 77 Year
  Sex: Male

DRUGS (3)
  1. OXALIPLATIN (OXALIPLATIN) [Suspect]
     Indication: METASTASES TO LUNG
  2. CAPECITABINE [Concomitant]
  3. LEUCOVORIN (CALCIUM FOLINATE) [Concomitant]

REACTIONS (1)
  - Thrombotic thrombocytopenic purpura [None]
